FAERS Safety Report 12228106 (Version 1)
Quarter: 2016Q2

REPORT INFORMATION
  Report Type: Spontaneous
  Country: GB (occurrence: GB)
  Receive Date: 20160401
  Receipt Date: 20160401
  Transmission Date: 20160815
  Serious: Yes (Disabling)
  Sender: FDA-Public Use
  Company Number: GB-ACCORD-039207

PATIENT
  Age: 33 Year
  Sex: Male
  Weight: 80 kg

DRUGS (1)
  1. SERTRALINE [Suspect]
     Active Substance: SERTRALINE HYDROCHLORIDE
     Indication: PRODUCT USED FOR UNKNOWN INDICATION
     Dosage: TAPERING DOSE 50 MG TO 25 MG TO 12.5 MG

REACTIONS (8)
  - Cognitive disorder [Recovered/Resolved]
  - Foreign body sensation in eyes [Recovered/Resolved]
  - Feeling jittery [Unknown]
  - Anxiety [Recovering/Resolving]
  - Speech disorder [Recovered/Resolved]
  - Withdrawal syndrome [Unknown]
  - Fatigue [Recovered/Resolved]
  - Asthenopia [Unknown]
